FAERS Safety Report 4324044-3 (Version None)
Quarter: 2004Q1

REPORT INFORMATION
  Report Type: 
  Country: None (occurrence: None)
  Receive Date: 20040326
  Receipt Date: 20031211
  Transmission Date: 20041129
  Serious: No
  Sender: FDA-Public Use
  Company Number: US-GLAXOSMITHKLINE-A0442781A

PATIENT
  Age: 47 Year
  Sex: Male

DRUGS (4)
  1. ADVAIR DISKUS 100/50 [Suspect]
     Indication: ASTHMA
     Dosage: 250MCG PER DAY
     Route: 055
     Dates: start: 20031111, end: 20031113
  2. PULMICORT [Concomitant]
  3. ALLEGRA [Concomitant]
  4. FLONASE [Concomitant]

REACTIONS (1)
  - BUCCAL MUCOSAL ROUGHENING [None]
